FAERS Safety Report 17501591 (Version 3)
Quarter: 2020Q2

REPORT INFORMATION
  Report Type: Spontaneous
  Country: US (occurrence: US)
  Receive Date: 20200305
  Receipt Date: 20200605
  Transmission Date: 20200713
  Serious: No
  Sender: FDA-Public Use
  Company Number: US-PFIZER INC-2020096510

PATIENT
  Age: 67 Year
  Sex: Female

DRUGS (4)
  1. XELJANZ XR [Suspect]
     Active Substance: TOFACITINIB CITRATE
     Indication: PSORIATIC ARTHROPATHY
     Dosage: 11 MG, 1X/DAY
     Route: 048
     Dates: start: 20200229
  2. OTEZLA [Concomitant]
     Active Substance: APREMILAST
     Dosage: UNK
  3. PREDNISONE. [Concomitant]
     Active Substance: PREDNISONE
     Dosage: UNK
  4. ARAVA [Concomitant]
     Active Substance: LEFLUNOMIDE
     Dosage: UNK
     Dates: end: 202003

REACTIONS (8)
  - Pre-existing condition improved [Unknown]
  - Therapeutic response unexpected [Unknown]
  - Enthesopathy [Unknown]
  - Pain [Recovering/Resolving]
  - Nail growth abnormal [Unknown]
  - Blood cholesterol increased [Recovering/Resolving]
  - Sensitivity to weather change [Unknown]
  - Nail disorder [Unknown]

NARRATIVE: CASE EVENT DATE: 2020
